FAERS Safety Report 8504521-1 (Version None)
Quarter: 2012Q3

REPORT INFORMATION
  Report Type: 
  Country: None (occurrence: None)
  Receive Date: 20120711
  Receipt Date: 20120628
  Transmission Date: 20120928
  Serious: Yes (Other)
  Sender: FDA-Public Use
  Company Number: US-ROCHE-1083160

PATIENT
  Sex: Female

DRUGS (1)
  1. XELODA [Suspect]
     Indication: COLORECTAL CANCER
     Route: 048

REACTIONS (6)
  - FATIGUE [None]
  - RECTAL HAEMORRHAGE [None]
  - OEDEMA GENITAL [None]
  - DYSURIA [None]
  - OEDEMA PERIPHERAL [None]
  - ABDOMINAL PAIN [None]
